FAERS Safety Report 4576352-9 (Version None)
Quarter: 2005Q1

REPORT INFORMATION
  Report Type: 
  Country: None (occurrence: None)
  Receive Date: 20050207
  Receipt Date: 20050125
  Transmission Date: 20050727
  Serious: Yes (Life-Threatening, Hospitalization)
  Sender: FDA-Public Use
  Company Number: HQWYE858826JAN05

PATIENT
  Age: 52 Year
  Sex: Male

DRUGS (1)
  1. AMIODARONE HCL [Suspect]
     Indication: ATRIAL FIBRILLATION
     Dosage: 1200 MG 1X PER 1 DAY INTRAVENOUS
     Route: 042
     Dates: start: 20041124, end: 20041125

REACTIONS (2)
  - LUNG INJURY [None]
  - PROCEDURAL COMPLICATION [None]
